FAERS Safety Report 6505595-X (Version None)
Quarter: 2009Q4

REPORT INFORMATION
  Report Type: 
  Country: None (occurrence: None)
  Receive Date: 20091218
  Receipt Date: 20091207
  Transmission Date: 20100525
  Serious: Yes (Other)
  Sender: FDA-Public Use
  Company Number: US-PFIZER INC-2009308209

PATIENT
  Age: 10 Week
  Sex: Female
  Weight: 0.698 kg

DRUGS (3)
  1. SPIRONOLACTONE [Suspect]
     Dosage: 4 UNK, UNK
  2. HYDROCHLOROTHIAZIDE [Concomitant]
     Dosage: UNK
  3. FERROUS SULFATE TAB [Concomitant]

REACTIONS (1)
  - OVARIAN CYST [None]
